FAERS Safety Report 24854427 (Version 1)
Quarter: 2025Q1

REPORT INFORMATION
  Report Type: Report from Study
  Country: US (occurrence: US)
  Receive Date: 20250117
  Receipt Date: 20250117
  Transmission Date: 20250408
  Serious: Yes (Hospitalization, Other)
  Sender: GILEAD
  Company Number: US-GILEAD-2025-0700095

PATIENT
  Age: 74 Year
  Sex: Male

DRUGS (1)
  1. AZTREONAM LYSINE [Suspect]
     Active Substance: AZTREONAM LYSINE
     Indication: Bronchiectasis
     Dosage: UNK UNK, TID (INHALE 1 VIAL 3 TIMES DAILY, ONE MONTH ON, ONE MONTH OFF)
     Route: 055
     Dates: start: 20241123

REACTIONS (3)
  - Myocardial infarction [Unknown]
  - Infection [Unknown]
  - Product use in unapproved indication [Not Recovered/Not Resolved]

NARRATIVE: CASE EVENT DATE: 20241123
